FAERS Safety Report 5043703-0 (Version None)
Quarter: 2006Q3

REPORT INFORMATION
  Report Type: 
  Country: None (occurrence: None)
  Receive Date: 20060706
  Receipt Date: 20060504
  Transmission Date: 20061208
  Serious: Yes (Hospitalization)
  Sender: FDA-Public Use
  Company Number: US-AMGEN-STX178557

PATIENT
  Sex: Male

DRUGS (8)
  1. ENBREL [Suspect]
     Indication: PSORIASIS
     Dates: start: 20050803, end: 20050813
  2. LEVAQUIN [Concomitant]
  3. HEPARIN [Concomitant]
  4. PROTONIX [Concomitant]
  5. ZOFRAN [Concomitant]
  6. DARVOCET [Concomitant]
  7. MORPHINE [Concomitant]
  8. OXYGEN [Concomitant]

REACTIONS (4)
  - CHRONIC OBSTRUCTIVE PULMONARY DISEASE [None]
  - LYMPHOMA [None]
  - PLEURAL EFFUSION [None]
  - SPLENOMEGALY [None]
